FAERS Safety Report 7283906-8 (Version None)
Quarter: 2011Q1

REPORT INFORMATION
  Report Type: 
  Country: None (occurrence: None)
  Receive Date: 20110131
  Receipt Date: 20101231
  Transmission Date: 20110831
  Serious: Yes (Death)
  Sender: FDA-Public Use
  Company Number: AUR-APL-2011-00069

PATIENT
  Age: 21 Year
  Sex: Male

DRUGS (6)
  1. CITALOPRAM [Suspect]
  2. AMLODIPINE [Suspect]
  3. ACETAMINOPHEN [Suspect]
  4. CLONAZEPAM [Suspect]
  5. METOPROLOL [Suspect]
  6. DIAZEPAM [Suspect]

REACTIONS (9)
  - ISCHAEMIC HEPATITIS [None]
  - COMPLETED SUICIDE [None]
  - RESPIRATORY ARREST [None]
  - URINE OUTPUT DECREASED [None]
  - SUICIDAL IDEATION [None]
  - POISONING [None]
  - ACUTE RESPIRATORY DISTRESS SYNDROME [None]
  - CARDIAC ARREST [None]
  - POOR PERIPHERAL CIRCULATION [None]
